FAERS Safety Report 4706715-X (Version None)
Quarter: 2005Q2

REPORT INFORMATION
  Report Type: 
  Country: None (occurrence: None)
  Receive Date: 20050629
  Receipt Date: 20050426
  Transmission Date: 20051028
  Serious: No
  Sender: FDA-Public Use
  Company Number: 05P-163-0298438-00

PATIENT
  Age: 72 Year
  Sex: Female

DRUGS (7)
  1. HUMIRA [Suspect]
     Indication: RHEUMATOID ARTHRITIS
     Dosage: 40 MG, 1 IN 2 WK, SUBCUTANEOUS
     Route: 058
     Dates: start: 20030101
  2. SERETIDE MITE [Concomitant]
  3. SINGULAIR [Concomitant]
  4. CROMOLYN SODIUM [Concomitant]
  5. AZATHIOPRINE [Concomitant]
  6. HYZAAR [Concomitant]
  7. FOLIC ACID [Concomitant]

REACTIONS (1)
  - HERPES SIMPLEX [None]
